FAERS Safety Report 13381636 (Version 1)
Quarter: 2017Q1

REPORT INFORMATION
  Report Type: Spontaneous
  Country: US (occurrence: US)
  Receive Date: 20170329
  Receipt Date: 20170329
  Transmission Date: 20170429
  Serious: Yes (Other)
  Sender: FDA-Public Use
  Company Number: US-ELI_LILLY_AND_COMPANY-US201703010972

PATIENT
  Age: 25 Year
  Sex: Male

DRUGS (2)
  1. HALOPERIDOL. [Suspect]
     Active Substance: HALOPERIDOL
     Indication: AGITATION
     Dosage: 10 MG, SINGLE
     Route: 042
  2. OLANZAPINE. [Suspect]
     Active Substance: OLANZAPINE
     Indication: AGITATION
     Dosage: 20 MG, OTHER
     Route: 042

REACTIONS (4)
  - Hypotension [Recovered/Resolved]
  - Sedation [Recovered/Resolved]
  - Bradycardia [Recovered/Resolved]
  - Off label use [Recovered/Resolved]
